FAERS Safety Report 7001188-9 (Version None)
Quarter: 2010Q3

REPORT INFORMATION
  Report Type: 
  Country: None (occurrence: None)
  Receive Date: 20100920
  Receipt Date: 20070808
  Transmission Date: 20110219
  Serious: Yes (Other)
  Sender: FDA-Public Use
  Company Number: US-ASTRAZENECA-2006UW11922

PATIENT
  Age: 54 Year
  Sex: Female
  Weight: 97.1 kg

DRUGS (13)
  1. SEROQUEL [Suspect]
     Indication: ANXIETY
     Route: 048
     Dates: start: 20031112
  2. SEROQUEL [Suspect]
     Indication: DEPRESSION
     Route: 048
     Dates: start: 20031112
  3. SEROQUEL [Suspect]
     Indication: SLEEP DISORDER
     Route: 048
     Dates: start: 20031112
  4. SEROQUEL [Suspect]
     Route: 048
     Dates: start: 20040101, end: 20050101
  5. SEROQUEL [Suspect]
     Route: 048
     Dates: start: 20040101, end: 20050101
  6. SEROQUEL [Suspect]
     Route: 048
     Dates: start: 20040101, end: 20050101
  7. GEODON [Concomitant]
     Dates: start: 20060101
  8. VICODIN [Concomitant]
     Indication: PAIN
     Dosage: STRENGTH-7.5/750 MG DOSE-1 EVERY 6 HRS IF NEEDED
     Route: 048
     Dates: start: 20030101
  9. LISINOPRIL [Concomitant]
     Indication: BLOOD PRESSURE
     Route: 048
     Dates: start: 20050101
  10. COUMADIN [Concomitant]
     Indication: ANTICOAGULANT THERAPY
     Dosage: STRENGTH-1MG, 2.5MG, 3MG, 4MG, 5MG. DOSE-1-5MG DAILY
     Route: 048
     Dates: start: 19990101
  11. LEXAPRO [Concomitant]
     Indication: DEPRESSION
     Route: 048
     Dates: start: 20050101
  12. DETROL LA [Concomitant]
     Indication: URINARY INCONTINENCE
     Route: 048
     Dates: start: 20050101
  13. GLUCAGON [Concomitant]
     Route: 048
     Dates: start: 20010101

REACTIONS (6)
  - BLOOD CHOLESTEROL INCREASED [None]
  - DIABETES MELLITUS [None]
  - DIZZINESS [None]
  - PANCREATITIS [None]
  - TYPE 2 DIABETES MELLITUS [None]
  - VISION BLURRED [None]
